FAERS Safety Report 8545379-4 (Version None)
Quarter: 2012Q3

REPORT INFORMATION
  Report Type: 
  Country: None (occurrence: None)
  Receive Date: 20120727
  Receipt Date: 20120725
  Transmission Date: 20120928
  Serious: No
  Sender: FDA-Public Use
  Company Number: US-BAYER-2012-075153

PATIENT
  Sex: Male
  Weight: 131.52 kg

DRUGS (10)
  1. METFORMIN HYDROCHLORIDE [Concomitant]
     Dosage: 500 MG, UNK
  2. DOXAZOSIN MESYLATE [Concomitant]
     Dosage: 1 MG, UNK
  3. GABAPENTIN [Concomitant]
     Dosage: 100 MG, UNK
  4. SIMVASTATIN [Concomitant]
     Dosage: 10 MG, UNK
  5. TRAMADOL HYDROCHLORIDE [Concomitant]
     Dosage: 50 MG, UNK
  6. FLUOXETINE HCL [Concomitant]
     Dosage: 10 MG, UNK
  7. CALCIUM [Concomitant]
     Dosage: 500
  8. IBUPROFEN [Concomitant]
     Dosage: 200 MG, UNK
  9. BETASERON [Suspect]
     Dosage: 0.25 MG, QOD
     Route: 058
  10. BACLOFEN [Concomitant]
     Dosage: 10 MG, UNK

REACTIONS (7)
  - OEDEMA PERIPHERAL [None]
  - INJECTION SITE REACTION [None]
  - CHILLS [None]
  - PAIN [None]
  - ERYTHEMA [None]
  - INFLUENZA LIKE ILLNESS [None]
  - BURNING SENSATION [None]
